FAERS Safety Report 5629802-0 (Version None)
Quarter: 2008Q1

REPORT INFORMATION
  Report Type: 
  Country: None (occurrence: None)
  Receive Date: 20080214
  Receipt Date: 20080131
  Transmission Date: 20080703
  Serious: Yes (Hospitalization, Other)
  Sender: FDA-Public Use
  Company Number: 100#08#2008-00657

PATIENT
  Age: 25 Year
  Sex: Male

DRUGS (4)
  1. CARBAMAZEPINE [Suspect]
     Indication: DRUG USE FOR UNKNOWN INDICATION
     Dosage: 20 G
  2. PAROXETINE HCL [Suspect]
     Indication: BORDERLINE PERSONALITY DISORDER
     Dosage: 400 MG
  3. RISPERIDONE [Concomitant]
  4. LITHIUM CARBONATE [Concomitant]

REACTIONS (18)
  - ALANINE AMINOTRANSFERASE INCREASED [None]
  - BEZOAR [None]
  - BLOOD CREATINE PHOSPHOKINASE INCREASED [None]
  - CARDIOVASCULAR DISORDER [None]
  - COMA [None]
  - DRUG TOXICITY [None]
  - FAECES DISCOLOURED [None]
  - GAMMA-GLUTAMYLTRANSFERASE INCREASED [None]
  - HYPERNATRAEMIA [None]
  - INTENTIONAL OVERDOSE [None]
  - LEUKOCYTOSIS [None]
  - PNEUMONIA ASPIRATION [None]
  - PNEUMONIA BACTERIAL [None]
  - SEPSIS [None]
  - SINUS TACHYCARDIA [None]
  - THROMBOCYTOPENIA [None]
  - TONIC CONVULSION [None]
  - VOMITING [None]
